FAERS Safety Report 23745419 (Version 5)
Quarter: 2025Q3

REPORT INFORMATION
  Report Type: Report from Study
  Country: US (occurrence: US)
  Receive Date: 20240416
  Receipt Date: 20250810
  Transmission Date: 20251020
  Serious: No
  Sender: ALEXION PHARMACEUTICALS
  Company Number: US-AstraZeneca-CH-00602145A

PATIENT
  Sex: Female

DRUGS (1)
  1. STRENSIQ [Suspect]
     Active Substance: ASFOTASE ALFA
     Route: 065

REACTIONS (11)
  - Pain [Not Recovered/Not Resolved]
  - Fatigue [Unknown]
  - Asthenia [Unknown]
  - Insomnia [Unknown]
  - Injection site pain [Recovered/Resolved]
  - Injection site hypertrophy [Unknown]
  - Jaw disorder [Unknown]
  - Tooth disorder [Unknown]
  - Muscle spasms [Unknown]
  - Weight increased [Unknown]
  - Injection site atrophy [Unknown]
